FAERS Safety Report 4955323-4 (Version None)
Quarter: 2006Q1

REPORT INFORMATION
  Report Type: 
  Country: None (occurrence: None)
  Receive Date: 20060328
  Receipt Date: 20060316
  Transmission Date: 20060701
  Serious: Yes (Other)
  Sender: FDA-Public Use
  Company Number: GB-JNJFOC-20050704181

PATIENT
  Sex: Female
  Weight: 29.2 kg

DRUGS (2)
  1. CONCERTA [Suspect]
     Route: 065
  2. RITALIN [Concomitant]
     Route: 065

REACTIONS (1)
  - NEUTROPENIA [None]
